FAERS Safety Report 20800677 (Version 1)
Quarter: 2022Q2

REPORT INFORMATION
  Report Type: Report from Study
  Country: JP (occurrence: JP)
  Receive Date: 20220509
  Receipt Date: 20220509
  Transmission Date: 20220721
  Serious: Yes (Life-Threatening, Other)
  Sender: FDA-Public Use
  Company Number: JP-KYOWAKIRIN-2022BKK006403

PATIENT

DRUGS (2)
  1. MOGAMULIZUMAB [Suspect]
     Active Substance: MOGAMULIZUMAB
     Indication: Product used for unknown indication
     Dosage: 0.1 MG/KG
     Route: 065
  2. MOGAMULIZUMAB [Suspect]
     Active Substance: MOGAMULIZUMAB
     Dosage: 1 MG/KG
     Route: 065

REACTIONS (14)
  - Skin disorder [Unknown]
  - Lymphocyte count decreased [Unknown]
  - Blood alkaline phosphatase decreased [Unknown]
  - Gamma-glutamyltransferase increased [Unknown]
  - Rash maculo-papular [Unknown]
  - Alanine aminotransferase increased [Unknown]
  - Aspartate aminotransferase increased [Unknown]
  - Eczema asteatotic [Unknown]
  - Erythema [Unknown]
  - Papule [Unknown]
  - Pruritus [Unknown]
  - Decreased appetite [Unknown]
  - Drug eruption [Unknown]
  - Rash [Unknown]
